FAERS Safety Report 6668753-X (Version None)
Quarter: 2010Q1

REPORT INFORMATION
  Report Type: 
  Country: None (occurrence: None)
  Receive Date: 20100322
  Receipt Date: 20100309
  Transmission Date: 20100710
  Serious: Yes (Life-Threatening)
  Sender: FDA-Public Use
  Company Number: 2010022247

PATIENT
  Sex: Female

DRUGS (4)
  1. IMMUNE GLOBULIN INTRAVENOUS (HUMAN) [Suspect]
     Indication: CHRONIC INFLAMMATORY DEMYELINATING POLYRADICULONEUROPATHY
     Dosage: 63 G IN 4 DAYS INTRAVENOUS
     Route: 042
  2. MOXONIDINE (MOXONIDINE) [Concomitant]
  3. LERCANIDIPINE [Concomitant]
  4. METFORMIN HCL [Concomitant]

REACTIONS (4)
  - ACUTE PULMONARY OEDEMA [None]
  - CARDIAC FAILURE [None]
  - ISCHAEMIC CARDIOMYOPATHY [None]
  - RENAL FAILURE [None]
